FAERS Safety Report 7245167-5 (Version None)
Quarter: 2011Q1

REPORT INFORMATION
  Report Type: 
  Country: None (occurrence: None)
  Receive Date: 20110126
  Receipt Date: 20110121
  Transmission Date: 20110831
  Serious: Yes (Hospitalization, Other)
  Sender: FDA-Public Use
  Company Number: CA-ABBOTT-10P-028-0692792-00

PATIENT
  Sex: Female
  Weight: 67 kg

DRUGS (4)
  1. HYDROXYQUINE [Concomitant]
     Indication: ARTHRITIS
     Dosage: 200 MG OD
     Dates: start: 19950101
  2. HUMIRA [Suspect]
     Indication: RHEUMATOID ARTHRITIS
     Route: 058
     Dates: start: 20100805
  3. PREDNISONE [Concomitant]
     Indication: ARTHRITIS
     Route: 048
     Dates: start: 19950101
  4. FOLIC ACID [Concomitant]
     Indication: GASTRIC DISORDER
     Dosage: 1 MG OD
     Route: 048
     Dates: start: 19950101

REACTIONS (2)
  - DECREASED IMMUNE RESPONSIVENESS [None]
  - SKIN INFECTION [None]
